FAERS Safety Report 7635566-1 (Version None)
Quarter: 2011Q3

REPORT INFORMATION
  Report Type: 
  Country: None (occurrence: None)
  Receive Date: 20110726
  Receipt Date: 20110715
  Transmission Date: 20111222
  Serious: Yes (Hospitalization)
  Sender: FDA-Public Use
  Company Number: CA-JNJFOC-20110503953

PATIENT
  Sex: Male
  Weight: 84 kg

DRUGS (29)
  1. ALBUTEROL [Concomitant]
     Indication: ASTHMA
     Route: 055
     Dates: start: 20080920
  2. FLUTICASONE PROPIONATE [Concomitant]
     Indication: ASTHMA
     Route: 055
     Dates: start: 20080920
  3. LUPRON [Concomitant]
     Indication: PROSTATE CANCER
     Route: 058
     Dates: start: 20080902
  4. NITROGLYCERIN SPRAY [Concomitant]
     Indication: ANGINA PECTORIS
     Route: 055
     Dates: start: 20050101
  5. STATEX [Concomitant]
     Indication: CANCER PAIN
     Route: 048
     Dates: start: 20100301
  6. HYDROMORPHONE HCL [Concomitant]
     Route: 048
     Dates: start: 20110501
  7. PROCHLORPERAZINE [Concomitant]
     Indication: NAUSEA
     Route: 048
     Dates: start: 20110501
  8. ABIRATERONE ACETATE [Suspect]
     Route: 048
     Dates: start: 20110125, end: 20110620
  9. PREDNISONE [Suspect]
     Route: 048
     Dates: start: 20110125
  10. DILTIAZEM [Concomitant]
     Indication: ANGINA PECTORIS
     Route: 048
     Dates: start: 20050107
  11. EFFEXOR [Concomitant]
     Route: 048
     Dates: start: 20091017, end: 20091026
  12. STATEX [Concomitant]
     Route: 048
     Dates: start: 20090212
  13. SENOKOT [Concomitant]
     Indication: CONSTIPATION PROPHYLAXIS
     Route: 048
     Dates: start: 20110223
  14. PREDNISONE [Suspect]
     Indication: PROSTATE CANCER METASTATIC
     Route: 048
     Dates: start: 20080807, end: 20110124
  15. NITRO PATCH (NITROGLYCERIN) [Concomitant]
     Indication: ANGINA PECTORIS
     Route: 062
     Dates: start: 20050101
  16. MORPHINE [Concomitant]
     Indication: CANCER PAIN
     Route: 048
     Dates: start: 20101005, end: 20110422
  17. FOSAMAX [Concomitant]
     Indication: OSTEOPOROSIS PROPHYLAXIS
     Route: 048
     Dates: start: 20101007
  18. DILAUDID [Concomitant]
     Indication: CANCER PAIN
     Route: 048
     Dates: start: 20110223, end: 20110501
  19. FLOMAX [Concomitant]
     Indication: NOCTURIA
     Route: 048
     Dates: start: 20090414
  20. VITAMIN B-12 [Concomitant]
     Indication: VITAMIN B12 DEFICIENCY
     Route: 030
     Dates: start: 19990101
  21. VITAMIN D [Concomitant]
     Indication: PROPHYLAXIS
     Route: 048
     Dates: start: 20080610
  22. MELOXICAM [Concomitant]
     Indication: ARTHRITIS
     Route: 048
     Dates: start: 20071026
  23. CALCIUM ACETATE [Concomitant]
     Indication: PROPHYLAXIS
     Route: 048
     Dates: start: 20080610
  24. EFFEXOR [Concomitant]
     Indication: HYPERHIDROSIS
     Route: 048
     Dates: start: 20091027
  25. GRAVOL TAB [Concomitant]
     Indication: VOMITING
     Route: 048
     Dates: start: 20110401
  26. GRAVOL TAB [Concomitant]
     Indication: NAUSEA
     Route: 048
     Dates: start: 20110401
  27. PROCHLORPERAZINE [Concomitant]
     Indication: VOMITING
     Route: 048
     Dates: start: 20110501
  28. ABIRATERONE ACETATE [Suspect]
     Indication: PROSTATE CANCER METASTATIC
     Route: 048
     Dates: start: 20080902, end: 20110124
  29. HYDROMORPHONE HCL [Concomitant]
     Indication: CANCER PAIN
     Route: 048
     Dates: start: 20110422

REACTIONS (1)
  - TRANSIENT ISCHAEMIC ATTACK [None]
